FAERS Safety Report 8763739 (Version 1)
Quarter: 2012Q4

REPORT INFORMATION
  Report Type: Spontaneous
  Country: US (occurrence: None)
  Receive Date: 20120831
  Receipt Date: 20120831
  Transmission Date: 20130627
  Serious: Yes (Life-Threatening, Hospitalization)
  Sender: FDA-Public Use
  Company Number: None

PATIENT
  Age: 45 Year
  Sex: Female

DRUGS (2)
  1. OPANA ER [Suspect]
     Dosage: Abuse suspected
Duration: up to 6 weeks
     Route: 042
  2. OPANA ER [Suspect]
     Dosage: Abuse suspected
Duration: up to 6 weeks
     Route: 042

REACTIONS (6)
  - Wrong technique in drug usage process [None]
  - Microangiopathic haemolytic anaemia [None]
  - Thrombocytopenia [None]
  - Nausea [None]
  - Vomiting [None]
  - Abdominal pain [None]
